FAERS Safety Report 8973710 (Version 2)
Quarter: 2012Q4

REPORT INFORMATION
  Report Type: 
  Country: JP (occurrence: JP)
  Receive Date: 20121219
  Receipt Date: 20121231
  Transmission Date: 20130627
  Serious: Yes (Hospitalization, Other)
  Sender: FDA-Public Use
  Company Number: JP-BRISTOL-MYERS SQUIBB COMPANY-17217746

PATIENT
  Age: 52 Year
  Sex: Male

DRUGS (2)
  1. ABILIFY ORAL SOLUTION [Suspect]
     Indication: SCHIZOPHRENIA
     Dosage: 1df= 0.1%
reg2-18mg:Unk-6Dec12
reg3-0.1%:7Dec12-Unk
     Route: 048
  2. RISPERDAL [Concomitant]

REACTIONS (2)
  - Ileus [Recovered/Resolved]
  - Anaemia [Unknown]
